FAERS Safety Report 6694817-0 (Version None)
Quarter: 2010Q2

REPORT INFORMATION
  Report Type: 
  Country: None (occurrence: None)
  Receive Date: 20100423
  Receipt Date: 20100414
  Transmission Date: 20101027
  Serious: Yes (Other)
  Sender: FDA-Public Use
  Company Number: US-JNJFOC-20100403910

PATIENT
  Sex: Female
  Weight: 70.31 kg

DRUGS (4)
  1. REMICADE [Suspect]
     Indication: UVEITIS
     Route: 042
  2. IMMUNE GLOBULIN INTRAVENOUS (HUMAN) [Suspect]
     Indication: MEDICATION ERROR
     Route: 042
  3. METHOTREXATE [Concomitant]
     Indication: UVEITIS
  4. FOLIC ACID [Concomitant]

REACTIONS (2)
  - MEDICATION ERROR [None]
  - UVEITIS [None]
